FAERS Safety Report 5734477-6 (Version None)
Quarter: 2008Q2

REPORT INFORMATION
  Report Type: 
  Country: None (occurrence: None)
  Receive Date: 20080512
  Receipt Date: 20080501
  Transmission Date: 20081010
  Serious: Yes (Hospitalization)
  Sender: FDA-Public Use
  Company Number: TW-NOVOPROD-275086

PATIENT
  Sex: Female
  Weight: 60 kg

DRUGS (14)
  1. LEVEMIR [Suspect]
     Indication: INSULIN-REQUIRING TYPE 2 DIABETES MELLITUS
     Dosage: 10 IU, BID
     Route: 058
     Dates: start: 20071029, end: 20080411
  2. DIPHENIDOL [Concomitant]
     Indication: VERTIGO
     Dates: start: 20080418
  3. FLUNARIZINE [Concomitant]
     Indication: CEREBROVASCULAR DISORDER
     Dates: start: 20080418
  4. ASPIRIN [Concomitant]
     Indication: HYPERTENSION
     Dates: start: 20010321
  5. IRBESARTAN [Concomitant]
     Indication: HYPERTENSION
     Dates: start: 20080412
  6. CARDIZEM [Concomitant]
     Indication: HYPERTENSION
     Dates: start: 20080412
  7. ESIDRI                             /00084001/ [Concomitant]
     Indication: HYPERTENSION
     Dates: start: 20080412
  8. CEREMIN                            /01003101/ [Concomitant]
     Indication: PROPHYLAXIS
     Dates: start: 20070818
  9. IMDUR [Concomitant]
     Indication: ANGINA PECTORIS
     Dates: start: 20060909
  10. GLIMEPIRIDE [Concomitant]
     Indication: DIABETES MELLITUS
     Dates: start: 20070816
  11. ACTOS [Concomitant]
     Indication: DIABETES MELLITUS
  12. GLUCOPHAGE [Concomitant]
     Indication: DIABETES MELLITUS
     Dates: start: 20050427
  13. LASIX [Concomitant]
     Indication: OEDEMA PERIPHERAL
     Dates: start: 20080201
  14. MODURETIC 5-50 [Concomitant]
     Indication: GLOMERULONEPHRITIS
     Dates: start: 20080418

REACTIONS (2)
  - PNEUMONIA [None]
  - RIB FRACTURE [None]
